FAERS Safety Report 15998974 (Version 1)
Quarter: 2019Q1

REPORT INFORMATION
  Report Type: Spontaneous
  Country: US (occurrence: US)
  Receive Date: 20190223
  Receipt Date: 20190223
  Transmission Date: 20190418
  Serious: Yes (Other)
  Sender: FDA-Public Use
  Company Number: PHEH2019US007295

PATIENT
  Sex: Female

DRUGS (3)
  1. LYRICA [Concomitant]
     Active Substance: PREGABALIN
     Indication: PRODUCT USED FOR UNKNOWN INDICATION
     Dosage: 150 MG, BID
     Route: 065
  2. RECLAST [Suspect]
     Active Substance: ZOLEDRONIC ACID
     Indication: PRODUCT USED FOR UNKNOWN INDICATION
     Dosage: 1 DF, QMO
     Route: 041
     Dates: start: 20190208
  3. LAMICTAL [Concomitant]
     Active Substance: LAMOTRIGINE
     Indication: PRODUCT USED FOR UNKNOWN INDICATION
     Dosage: 200 MG, BID
     Route: 065

REACTIONS (7)
  - Myalgia [Unknown]
  - Fall [Recovering/Resolving]
  - Trigeminal palsy [Unknown]
  - Arthralgia [Unknown]
  - Bone pain [Unknown]
  - Loss of control of legs [Unknown]
  - Gait inability [Unknown]
